FAERS Safety Report 15673602 (Version 2)
Quarter: 2018Q4

REPORT INFORMATION
  Report Type: Spontaneous
  Country: US (occurrence: US)
  Receive Date: 20181129
  Receipt Date: 20181130
  Transmission Date: 20190205
  Serious: No
  Sender: FDA-Public Use
  Company Number: US-PFIZER INC-2018478145

PATIENT
  Sex: Male

DRUGS (2)
  1. CEFPODOXIME PROXETIL. [Suspect]
     Active Substance: CEFPODOXIME PROXETIL
     Dosage: UNK
  2. VANTIN [Suspect]
     Active Substance: CEFPODOXIME PROXETIL
     Dosage: UNK

REACTIONS (3)
  - Lethargy [Unknown]
  - Fatigue [Unknown]
  - Somnolence [Unknown]
